FAERS Safety Report 4877009-7 (Version None)
Quarter: 2005Q4

REPORT INFORMATION
  Report Type: 
  Country: None (occurrence: None)
  Receive Date: 20051206
  Receipt Date: 20050913
  Transmission Date: 20060501
  Serious: No
  Sender: FDA-Public Use
  Company Number: USA0509108266

PATIENT
  Age: 53 Year
  Sex: Male

DRUGS (2)
  1. CYMBALTA [Suspect]
     Indication: DEPRESSION
     Dosage: 30 MG
  2. CYMBALTA [Suspect]
     Indication: NEURALGIA
     Dosage: 30 MG

REACTIONS (2)
  - CRYING [None]
  - TEARFULNESS [None]
